FAERS Safety Report 25590791 (Version 1)
Quarter: 2025Q3

REPORT INFORMATION
  Report Type: Spontaneous
  Country: US (occurrence: US)
  Receive Date: 20250722
  Receipt Date: 20250722
  Transmission Date: 20251021
  Serious: No
  Sender: INCYTE
  Company Number: US-INCYTE CORPORATION-2025IN007669

PATIENT

DRUGS (1)
  1. JAKAFI [Suspect]
     Active Substance: RUXOLITINIB
     Indication: Essential thrombocythaemia
     Dosage: 25 MILLIGRAM, BID

REACTIONS (4)
  - Alopecia [Unknown]
  - Wound haemorrhage [Unknown]
  - Peripheral swelling [Unknown]
  - Off label use [Unknown]
